FAERS Safety Report 16914992 (Version 4)
Quarter: 2019Q4

REPORT INFORMATION
  Report Type: Spontaneous
  Country: IT (occurrence: IT)
  Receive Date: 20191014
  Receipt Date: 20191209
  Transmission Date: 20200122
  Serious: No
  Sender: FDA-Public Use
  Company Number: IT-TOLMAR, INC.-19IT000510

PATIENT
  Age: 86 Year
  Sex: Male

DRUGS (2)
  1. ELIGARD [Suspect]
     Active Substance: LEUPROLIDE ACETATE
     Indication: PRODUCT USED FOR UNKNOWN INDICATION
     Dosage: 22.5 MG, EVERY 3 MONTHS
     Route: 058
  2. ELIGARD [Suspect]
     Active Substance: LEUPROLIDE ACETATE
     Dosage: 22.5 MG, EVERY 3 MONTHS
     Route: 058
     Dates: start: 201910

REACTIONS (4)
  - Intercepted product preparation error [None]
  - Device breakage [None]
  - Product dose omission [None]
  - Wrong technique in product usage process [None]

NARRATIVE: CASE EVENT DATE: 20190705
